FAERS Safety Report 8056295-9 (Version None)
Quarter: 2012Q1

REPORT INFORMATION
  Report Type: 
  Country: None (occurrence: None)
  Receive Date: 20120119
  Receipt Date: 20120110
  Transmission Date: 20120608
  Serious: Yes (Hospitalization)
  Sender: FDA-Public Use
  Company Number: US-BAYER-2010-002196

PATIENT
  Age: 23 Year
  Sex: Female
  Weight: 78.005 kg

DRUGS (6)
  1. LYRICA [Concomitant]
  2. LEXAPRO [Concomitant]
  3. DROSPIRENONE AND ETHINYL ESTRADIOL [Suspect]
     Indication: PREMENSTRUAL SYNDROME
     Dosage: UNK
     Dates: start: 20061001, end: 20110401
  4. YASMIN [Suspect]
     Indication: PREMENSTRUAL SYNDROME
     Dosage: UNK
     Route: 048
     Dates: start: 20061001, end: 20110401
  5. HYDROCORTISONE [Concomitant]
  6. LORTAB [Concomitant]

REACTIONS (1)
  - CHOLELITHIASIS [None]
